FAERS Safety Report 5768912-4 (Version None)
Quarter: 2008Q2

REPORT INFORMATION
  Report Type: 
  Country: None (occurrence: None)
  Receive Date: 20080610
  Receipt Date: 20080602
  Transmission Date: 20081010
  Serious: Yes (Other)
  Sender: FDA-Public Use
  Company Number: GXKR2008GB05017

PATIENT
  Age: 59 Year
  Sex: Male

DRUGS (3)
  1. LISINOPRIL [Suspect]
  2. SIMVASTATIN [Suspect]
  3. INSULIN [Suspect]
     Indication: TYPE 1 DIABETES MELLITUS

REACTIONS (2)
  - HYPOGLYCAEMIA [None]
  - SOMNOLENCE [None]
